FAERS Safety Report 8351488-5 (Version None)
Quarter: 2012Q2

REPORT INFORMATION
  Report Type: 
  Country: None (occurrence: None)
  Receive Date: 20120510
  Receipt Date: 20120503
  Transmission Date: 20120825
  Serious: Yes (Other)
  Sender: FDA-Public Use
  Company Number: CHPA2012US010094

PATIENT
  Sex: Female

DRUGS (2)
  1. PREVACID 24 HR [Suspect]
     Indication: GASTROOESOPHAGEAL REFLUX DISEASE
     Dosage: 15MG ONCE A DAY
     Route: 048
  2. SUNSCREEN AGENTS [Concomitant]

REACTIONS (6)
  - OFF LABEL USE [None]
  - SINUSITIS [None]
  - PAIN [None]
  - EAR INFECTION [None]
  - CERUMEN IMPACTION [None]
  - INCORRECT DRUG ADMINISTRATION DURATION [None]
